FAERS Safety Report 5049863-X (Version None)
Quarter: 2006Q3

REPORT INFORMATION
  Report Type: 
  Country: None (occurrence: None)
  Receive Date: 20060706
  Receipt Date: 20060621
  Transmission Date: 20061208
  Serious: Yes (Death)
  Sender: FDA-Public Use
  Company Number: 146317USA

PATIENT
  Age: 16 Year
  Sex: Male

DRUGS (5)
  1. DAUNORUBICIN [Suspect]
     Indication: ACUTE PROMYELOCYTIC LEUKAEMIA
     Dosage: 38 MILLIGRAM INTRAVENOUS (NOS)
     Route: 042
  2. DEXAMETHASONE TAB [Suspect]
     Indication: ACUTE PROMYELOCYTIC LEUKAEMIA
     Dosage: 380 MILLIGRAM INTRAVENOUS (NOS)
     Route: 042
  3. CYTARABINE [Suspect]
     Indication: ACUTE PROMYELOCYTIC LEUKAEMIA
     Dosage: 180 MILLIGRAM INTRAVENOUS (NOS)
     Route: 042
  4. TIOGUANINE [Suspect]
     Indication: ACUTE PROMYELOCYTIC LEUKAEMIA
     Dosage: 180 MILLIGRAM INTRAVENOUS (NOS)
     Route: 042
  5. ETOPOSIDE [Suspect]
     Indication: ACUTE PROMYELOCYTIC LEUKAEMIA

REACTIONS (3)
  - METASTATIC NEOPLASM [None]
  - RENAL MASS [None]
  - SUDDEN DEATH [None]
